FAERS Safety Report 21496724 (Version 1)
Quarter: 2022Q4

REPORT INFORMATION
  Report Type: Spontaneous
  Country: LT (occurrence: LT)
  Receive Date: 20221022
  Receipt Date: 20221022
  Transmission Date: 20230113
  Serious: Yes (Other)
  Sender: FDA-Public Use
  Company Number: None

PATIENT
  Age: 44 Year
  Sex: Female
  Weight: 62 kg

DRUGS (2)
  1. OMEPRAZOLE [Suspect]
     Active Substance: OMEPRAZOLE
     Indication: Gastritis
     Dosage: 40 MG DAILY , HARD CAPSULE , FORM STRENGTH : 20 MG , UNIT DOSE : 20 MG , FREQUENCY TIME : 2 DAY  , T
     Dates: start: 2015
  2. MELOXICAM [Concomitant]
     Active Substance: MELOXICAM
     Indication: Intervertebral disc protrusion
     Dosage: 30 MG DAILY , .015 G , FORM STRENGTH : 15 MG, UNIT DOSE : 15 MG , FREQUENCY TIME : 2 DAYS , THERAPY

REACTIONS (8)
  - Arrhythmia [Not Recovered/Not Resolved]
  - Flatulence [Not Recovered/Not Resolved]
  - Muscular weakness [Not Recovered/Not Resolved]
  - Muscle spasms [Not Recovered/Not Resolved]
  - Asthenia [Not Recovered/Not Resolved]
  - Alopecia [Not Recovered/Not Resolved]
  - Rash [Not Recovered/Not Resolved]
  - Full blood count abnormal [Not Recovered/Not Resolved]

NARRATIVE: CASE EVENT DATE: 20220802
